FAERS Safety Report 22007998 (Version 9)
Quarter: 2024Q3

REPORT INFORMATION
  Report Type: Report from Study
  Country: BD (occurrence: BD)
  Receive Date: 20230218
  Receipt Date: 20240826
  Transmission Date: 20241017
  Serious: Yes (Death, Hospitalization, Other)
  Sender: NOVARTIS
  Company Number: BD-002147023-NVSC2023BD018149

PATIENT
  Age: 63 Year
  Sex: Male
  Weight: 62 kg

DRUGS (2)
  1. ENTRESTO [Suspect]
     Active Substance: SACUBITRIL\VALSARTAN
     Indication: Cardiac failure
     Dosage: 1 DOSAGE FORM, BID (100 MG)
     Route: 048
  2. ENTRESTO [Suspect]
     Active Substance: SACUBITRIL\VALSARTAN
     Indication: Cardiac failure chronic

REACTIONS (20)
  - Infection [Fatal]
  - Myocardial infarction [Recovered/Resolved]
  - Chest pain [Not Recovered/Not Resolved]
  - Constipation [Unknown]
  - Decreased appetite [Unknown]
  - Dyspnoea [Unknown]
  - Pleural effusion [Unknown]
  - Blindness unilateral [Unknown]
  - Eye haemorrhage [Unknown]
  - Coronary artery occlusion [Unknown]
  - Chronic kidney disease [Unknown]
  - Chest discomfort [Not Recovered/Not Resolved]
  - Flatulence [Not Recovered/Not Resolved]
  - Orthopnoea [Recovering/Resolving]
  - Oliguria [Unknown]
  - Oedema [Unknown]
  - Insomnia [Not Recovered/Not Resolved]
  - Back pain [Unknown]
  - Injection site swelling [Unknown]
  - Asthenia [Not Recovered/Not Resolved]

NARRATIVE: CASE EVENT DATE: 20230212
